FAERS Safety Report 8369189-6 (Version None)
Quarter: 2012Q2

REPORT INFORMATION
  Report Type: 
  Country: None (occurrence: None)
  Receive Date: 20120518
  Receipt Date: 20120514
  Transmission Date: 20120825
  Serious: Yes (Other)
  Sender: FDA-Public Use
  Company Number: US-BAYER-2011-069919

PATIENT
  Age: 30 Year
  Sex: Female
  Weight: 69 kg

DRUGS (6)
  1. VALACICLOVIR [Concomitant]
     Indication: ORAL HERPES
     Dosage: UNK UNK, PRN
  2. YASMIN [Suspect]
     Indication: PREMENSTRUAL SYNDROME
  3. FLONASE [Concomitant]
     Indication: MULTIPLE ALLERGIES
     Dosage: UNK, INHALER
     Dates: start: 20050801, end: 20110101
  4. YASMIN [Suspect]
     Indication: CONTRACEPTION
     Dosage: UNK
     Dates: start: 20050819, end: 20090812
  5. VALTREX [Concomitant]
     Indication: ORAL HERPES
     Dosage: UNK
     Dates: start: 20060101, end: 20110101
  6. CRYSELLE [Concomitant]
     Dosage: UNK

REACTIONS (7)
  - ANHEDONIA [None]
  - GALLBLADDER DISORDER [None]
  - PAIN [None]
  - EMOTIONAL DISTRESS [None]
  - ANXIETY [None]
  - INJURY [None]
  - BILIARY DYSKINESIA [None]
